FAERS Safety Report 21759984 (Version 2)
Quarter: 2022Q4

REPORT INFORMATION
  Report Type: Spontaneous
  Country: US (occurrence: US)
  Receive Date: 20221221
  Receipt Date: 20221226
  Transmission Date: 20230113
  Serious: No
  Sender: FDA-Public Use
  Company Number: US-002147023-NVSC2022US294145

PATIENT
  Age: 46 Year
  Sex: Female
  Weight: 53 kg

DRUGS (1)
  1. ILARIS [Suspect]
     Active Substance: CANAKINUMAB
     Indication: Cryopyrin associated periodic syndrome
     Dosage: 150 MG, OTHER
     Route: 058
     Dates: start: 20221108

REACTIONS (1)
  - Blood triglycerides increased [Unknown]

NARRATIVE: CASE EVENT DATE: 20221219
